FAERS Safety Report 22831463 (Version 3)
Quarter: 2023Q4

REPORT INFORMATION
  Report Type: Report from Study
  Country: AR (occurrence: AR)
  Receive Date: 20230817
  Receipt Date: 20231116
  Transmission Date: 20240110
  Serious: Yes (Other)
  Sender: FDA-Public Use
  Company Number: AR-002147023-NVSC2023AR178058

PATIENT
  Age: 72 Year
  Sex: Female

DRUGS (1)
  1. COSENTYX [Suspect]
     Active Substance: SECUKINUMAB
     Indication: Psoriasis
     Dosage: 300 MG, QMO
     Route: 065
     Dates: start: 202207

REACTIONS (5)
  - Diverticulum [Unknown]
  - Haemorrhoids [Unknown]
  - Weight decreased [Unknown]
  - Injection site swelling [Unknown]
  - Influenza [Unknown]

NARRATIVE: CASE EVENT DATE: 20230731
